FAERS Safety Report 18547093 (Version 2)
Quarter: 2021Q1

REPORT INFORMATION
  Report Type: Spontaneous
  Country: US (occurrence: US)
  Receive Date: 20201125
  Receipt Date: 20210225
  Transmission Date: 20210419
  Serious: Yes (Death, Life-Threatening, Hospitalization, Other)
  Sender: FDA-Public Use
  Company Number: US-BRISTOL-MYERS SQUIBB COMPANY-BMS-2020-098365

PATIENT
  Age: 71 Year
  Sex: Female
  Weight: 70 kg

DRUGS (9)
  1. ASCORBIC ACID. [Concomitant]
     Active Substance: ASCORBIC ACID
     Indication: PRODUCT USED FOR UNKNOWN INDICATION
     Dosage: UNK
     Route: 065
     Dates: start: 20200706
  2. CANAKINUMAB. [Suspect]
     Active Substance: CANAKINUMAB
     Indication: PNEUMONIA
     Dosage: UNK
     Route: 042
     Dates: start: 20200630
  3. BUTALBITAL [Concomitant]
     Active Substance: BUTALBITAL
     Indication: PRODUCT USED FOR UNKNOWN INDICATION
     Dosage: UNK
     Route: 065
  4. ZINC SULFATE. [Concomitant]
     Active Substance: ZINC SULFATE
     Indication: PRODUCT USED FOR UNKNOWN INDICATION
     Dosage: UNK
     Route: 065
     Dates: start: 20200707
  5. DEXAMETHASONE. [Concomitant]
     Active Substance: DEXAMETHASONE
     Indication: PRODUCT USED FOR UNKNOWN INDICATION
     Dosage: UNK
     Route: 065
     Dates: start: 20200630
  6. SENNA [SENNA ALEXANDRINA] [Concomitant]
     Active Substance: SENNA LEAF
     Indication: PRODUCT USED FOR UNKNOWN INDICATION
     Dosage: UNK
     Route: 065
     Dates: start: 20140624
  7. ELIQUIS [Suspect]
     Active Substance: APIXABAN
     Indication: COVID-19
     Dosage: 2.5 MILLIGRAM, BID
     Route: 048
     Dates: start: 20200708, end: 20200828
  8. POLYETHYLENE GLYCOL [MACROGOL] [Concomitant]
     Active Substance: POLYETHYLENE GLYCOLS
     Indication: PRODUCT USED FOR UNKNOWN INDICATION
     Dosage: UNK
     Route: 065
     Dates: start: 20200227
  9. CEFTRIAXONE. [Concomitant]
     Active Substance: CEFTRIAXONE
     Indication: PRODUCT USED FOR UNKNOWN INDICATION
     Dosage: UNK
     Route: 065
     Dates: start: 20200707

REACTIONS (5)
  - Gastrointestinal haemorrhage [Fatal]
  - Acute respiratory failure [Unknown]
  - Duodenal ulcer [Unknown]
  - Gastritis [Unknown]
  - Anaemia [Unknown]

NARRATIVE: CASE EVENT DATE: 202007
